FAERS Safety Report 25378863 (Version 2)
Quarter: 2025Q3

REPORT INFORMATION
  Report Type: Report from Study
  Country: US (occurrence: US)
  Receive Date: 20250530
  Receipt Date: 20250926
  Transmission Date: 20251021
  Serious: Yes (Hospitalization, Other)
  Sender: JOHNSON AND JOHNSON
  Company Number: US-JNJFOC-20250531005

PATIENT

DRUGS (16)
  1. RISPERDAL [Suspect]
     Active Substance: RISPERIDONE
     Indication: Product used for unknown indication
     Dosage: MEAN MODAL DOSE: 3.9 MG PER DAY
  2. RISPERDAL [Suspect]
     Active Substance: RISPERIDONE
  3. RISPERDAL [Suspect]
     Active Substance: RISPERIDONE
  4. RISPERDAL [Suspect]
     Active Substance: RISPERIDONE
  5. RISPERDAL [Suspect]
     Active Substance: RISPERIDONE
  6. RISPERDAL [Suspect]
     Active Substance: RISPERIDONE
  7. OLANZAPINE [Suspect]
     Active Substance: OLANZAPINE
     Indication: Product used for unknown indication
     Route: 065
  8. OLANZAPINE [Suspect]
     Active Substance: OLANZAPINE
     Route: 065
  9. OLANZAPINE [Suspect]
     Active Substance: OLANZAPINE
     Dosage: MEAN MODAL DOSE: 20.1 MG PER DAY
     Route: 065
  10. QUETIAPINE [Suspect]
     Active Substance: QUETIAPINE
     Indication: Product used for unknown indication
     Route: 065
  11. QUETIAPINE [Suspect]
     Active Substance: QUETIAPINE
     Dosage: DAY 1 AND 2. MEAN MODAL DOSE: 543.4 MG PER DAY
     Route: 065
  12. PERPHENAZINE [Suspect]
     Active Substance: PERPHENAZINE
     Indication: Product used for unknown indication
     Route: 065
  13. PERPHENAZINE [Suspect]
     Active Substance: PERPHENAZINE
     Route: 065
  14. PERPHENAZINE [Suspect]
     Active Substance: PERPHENAZINE
     Dosage: MEAN MODAL DOSE: 20.8 MG PER DAY
     Route: 065
  15. ZIPRASIDONE [Suspect]
     Active Substance: ZIPRASIDONE
     Indication: Product used for unknown indication
     Dosage: MEAN MODAL DOSE: 112.8 MG PER DAY
     Route: 065
  16. LITHIUM [Concomitant]
     Active Substance: LITHIUM
     Indication: Product used for unknown indication
     Route: 065

REACTIONS (20)
  - Hospitalisation [Unknown]
  - Suicide attempt [Unknown]
  - Suicidal ideation [Unknown]
  - Hyperprolactinaemia [Unknown]
  - Syncope [Unknown]
  - Insomnia [Unknown]
  - Hypersomnia [Unknown]
  - Urinary hesitation [Unknown]
  - Dry mouth [Unknown]
  - Constipation [Unknown]
  - Sexual activity decreased [Unknown]
  - Gynaecomastia [Unknown]
  - Galactorrhoea [Unknown]
  - Menstrual disorder [Unknown]
  - Incontinence [Unknown]
  - Nocturia [Unknown]
  - Weight increased [Unknown]
  - Extrapyramidal disorder [Unknown]
  - Sedation [Unknown]
  - Drug ineffective [Unknown]
